FAERS Safety Report 14625640 (Version 3)
Quarter: 2018Q2

REPORT INFORMATION
  Report Type: Spontaneous
  Country: US (occurrence: US)
  Receive Date: 20180312
  Receipt Date: 20180406
  Transmission Date: 20180711
  Serious: No
  Sender: FDA-Public Use
  Company Number: US-GLAXOSMITHKLINE-US2018040146

PATIENT
  Age: 61 Year
  Sex: Female

DRUGS (4)
  1. OXYCONTIN [Concomitant]
     Active Substance: OXYCODONE HYDROCHLORIDE
  2. CELEBREX [Concomitant]
     Active Substance: CELECOXIB
  3. LYRICA [Concomitant]
     Active Substance: PREGABALIN
  4. VENTOLIN HFA [Suspect]
     Active Substance: ALBUTEROL SULFATE
     Indication: ASTHMA
     Dosage: 1 PUFF(S), PRN

REACTIONS (2)
  - Wrong technique in product usage process [Unknown]
  - Bronchitis [Unknown]

NARRATIVE: CASE EVENT DATE: 201801
